FAERS Safety Report 19621757 (Version 3)
Quarter: 2022Q1

REPORT INFORMATION
  Report Type: Report from Study
  Country: US (occurrence: US)
  Receive Date: 20210728
  Receipt Date: 20220208
  Transmission Date: 20220424
  Serious: Yes (Other)
  Sender: FDA-Public Use
  Company Number: US-NOVARTISPH-NVSC2021US169697

PATIENT
  Sex: Female

DRUGS (1)
  1. ENTRESTO [Suspect]
     Active Substance: SACUBITRIL\VALSARTAN
     Indication: Product used for unknown indication
     Dosage: UNK
     Route: 065

REACTIONS (7)
  - Atrial fibrillation [Unknown]
  - Dementia [Unknown]
  - Glaucoma [Unknown]
  - Memory impairment [Unknown]
  - Gait disturbance [Unknown]
  - Fatigue [Unknown]
  - Visual impairment [Unknown]
